FAERS Safety Report 24067617 (Version 1)
Quarter: 2024Q3

REPORT INFORMATION
  Report Type: Report from Study
  Country: DE (occurrence: DE)
  Receive Date: 20240710
  Receipt Date: 20240710
  Transmission Date: 20241016
  Serious: Yes (Other)
  Sender: CELLTRION
  Company Number: DE-CELLTRION INC.-2024DE016105

PATIENT

DRUGS (4)
  1. TRASTUZUMAB [Suspect]
     Active Substance: TRASTUZUMAB
     Indication: Breast cancer
     Dosage: DATE OF LAST APPLICATION PRIOR EVENT: 27/OCT/2022, LAST DOSE PRIOR EVENT: 498 MG
     Route: 065
     Dates: start: 20220804, end: 20221027
  2. PERTUZUMAB [Suspect]
     Active Substance: PERTUZUMAB
     Indication: Breast cancer
     Dosage: DATE OF LAST APPLICATION PRIOR EVENT: 27/OCT/2022, LAST DOSE PRIOR EVENT: 420 MG
     Route: 065
     Dates: start: 20220804, end: 20221027
  3. PACLITAXEL [Suspect]
     Active Substance: PACLITAXEL
     Indication: Breast cancer
     Dosage: DATE OF LAST APPLICATION PRIOR EVENT: 27/OCT/2022, LAST DOSE PRIOR EVENT: 159.2 MG
     Route: 065
     Dates: start: 20220714, end: 20221110
  4. CARBOPLATIN [Suspect]
     Active Substance: CARBOPLATIN
     Indication: Breast cancer
     Dosage: DATE OF LAST APPLICATION PRIOR EVENT: 27/OCT/2022, LAST DOSE PRIOR EVENT: 603 MG
     Route: 065
     Dates: start: 20220714, end: 20221027

REACTIONS (1)
  - Polyneuropathy [Not Recovered/Not Resolved]

NARRATIVE: CASE EVENT DATE: 20221101
